FAERS Safety Report 4531919-9 (Version None)
Quarter: 2004Q4

REPORT INFORMATION
  Report Type: 
  Country: None (occurrence: None)
  Receive Date: 20041220
  Receipt Date: 20021114
  Transmission Date: 20050328
  Serious: Yes (Hospitalization, Disabling)
  Sender: FDA-Public Use
  Company Number: US-GLAXOSMITHKLINE-A0386890A

PATIENT
  Age: 33 Year
  Sex: Male
  Weight: 139.5 kg

DRUGS (3)
  1. BC MULTI-SYMPTOM ALLERGY SINUS COLD [Suspect]
     Route: 048
     Dates: start: 19990101, end: 19990101
  2. BC SINUS COLD-PHENYLPROPANOLAMINE [Suspect]
  3. ALKA SELTZER PLUS COLD [Suspect]

REACTIONS (20)
  - AMNESIA [None]
  - APHASIA [None]
  - APRAXIA [None]
  - CEREBRAL INFARCTION [None]
  - CONVULSION [None]
  - DEPRESSION [None]
  - DYSGRAPHIA [None]
  - DYSPHASIA [None]
  - FACIAL PARESIS [None]
  - HEADACHE [None]
  - HEMIPARESIS [None]
  - HYPOAESTHESIA [None]
  - ILLITERACY [None]
  - IRRITABILITY [None]
  - ISCHAEMIC STROKE [None]
  - MENTAL STATUS CHANGES [None]
  - MUSCLE SPASMS [None]
  - NERVOUS SYSTEM DISORDER [None]
  - SUICIDAL IDEATION [None]
  - VISUAL DISTURBANCE [None]
